FAERS Safety Report 22605865 (Version 1)
Quarter: 2023Q2

REPORT INFORMATION
  Report Type: Spontaneous
  Country: US (occurrence: US)
  Receive Date: 20230615
  Receipt Date: 20230615
  Transmission Date: 20230721
  Serious: No
  Sender: FDA-Public Use
  Company Number: US-TAKEDA-2023TUS058378

PATIENT

DRUGS (1)
  1. GAMMAGARD LIQUID [Suspect]
     Active Substance: HUMAN IMMUNOGLOBULIN G
     Indication: Susac^s syndrome
     Dosage: 45 GRAM, 1/WEEK
     Route: 042

REACTIONS (2)
  - Insurance issue [Unknown]
  - Drug effective for unapproved indication [Unknown]
